FAERS Safety Report 24876119 (Version 1)
Quarter: 2025Q1

REPORT INFORMATION
  Report Type: Spontaneous
  Country: US (occurrence: US)
  Receive Date: 20250123
  Receipt Date: 20250123
  Transmission Date: 20250409
  Serious: No
  Sender: AUROBINDO
  Company Number: US-AUROBINDO-AUR-APL-2024-005776

PATIENT
  Age: 3 Year
  Sex: Female
  Weight: 14.968 kg

DRUGS (1)
  1. CEFDINIR [Suspect]
     Active Substance: CEFDINIR
     Indication: Ear infection
     Dosage: 4 MILLILITER, ONCE A DAY (FRO 10 DAYS)
     Route: 048

REACTIONS (1)
  - Abdominal discomfort [Recovered/Resolved]
